FAERS Safety Report 8517528-5 (Version None)
Quarter: 2012Q3

REPORT INFORMATION
  Report Type: 
  Country: None (occurrence: None)
  Receive Date: 20120718
  Receipt Date: 20120705
  Transmission Date: 20120928
  Serious: Yes (Other)
  Sender: FDA-Public Use
  Company Number: US-ROCHE-1084665

PATIENT
  Sex: Female

DRUGS (3)
  1. XELODA [Suspect]
     Indication: NEUROENDOCRINE TUMOUR
  2. AVASTIN [Suspect]
     Indication: NEUROENDOCRINE TUMOUR
     Route: 042
  3. TEMOZOLOMIDE [Suspect]
     Indication: NEUROENDOCRINE TUMOUR

REACTIONS (2)
  - HEPATIC LESION [None]
  - ASTHENIA [None]
